FAERS Safety Report 19678292 (Version 1)
Quarter: 2021Q3

REPORT INFORMATION
  Report Type: Other
  Country: CA (occurrence: CA)
  Receive Date: 20210809
  Receipt Date: 20210809
  Transmission Date: 20211014
  Serious: Yes (Other)
  Sender: FDA-Public Use
  Company Number: CA-LARKEN LABORATORIES, INC.-2114804

PATIENT
  Sex: Male
  Weight: .9 kg

DRUGS (2)
  1. 1 DOSE OF SURFACTANT GIVEN BEFORE DEXAMETHASONE TREATMENT WAS STARTED. [Concomitant]
  2. DEXAMETHASONE 1.5 MG TABLET [Suspect]
     Active Substance: DEXAMETHASONE
     Indication: ATELECTASIS NEONATAL

REACTIONS (1)
  - Diabetes insipidus [Recovered/Resolved]
